FAERS Safety Report 11196126 (Version 2)
Quarter: 2015Q3

REPORT INFORMATION
  Report Type: Spontaneous
  Country: US (occurrence: US)
  Receive Date: 20150617
  Receipt Date: 20150730
  Transmission Date: 20151125
  Serious: Yes (Hospitalization, Other)
  Sender: FDA-Public Use
  Company Number: US-GLAXOSMITHKLINE-US2015GSK080695

PATIENT
  Sex: Male

DRUGS (3)
  1. VOTRIENT [Suspect]
     Active Substance: PAZOPANIB HYDROCHLORIDE
     Indication: RENAL CANCER
     Dosage: 1000 MG, UNK
     Dates: start: 20150519
  2. VOTRIENT [Suspect]
     Active Substance: PAZOPANIB HYDROCHLORIDE
     Dosage: 800 MG, QD
     Dates: start: 20150519
  3. HEPARIN [Concomitant]
     Active Substance: HEPARIN SODIUM
     Indication: EXERCISE LACK OF
     Dosage: UNK

REACTIONS (3)
  - Hospitalisation [Unknown]
  - Hypertension [Unknown]
  - Hospice care [Unknown]
